FAERS Safety Report 18457566 (Version 1)
Quarter: 2020Q4

REPORT INFORMATION
  Report Type: Spontaneous
  Country: HR (occurrence: HR)
  Receive Date: 20201103
  Receipt Date: 20201103
  Transmission Date: 20210114
  Serious: Yes (Other)
  Sender: FDA-Public Use
  Company Number: NVSC2020HR293721

PATIENT
  Age: 29 Year
  Sex: Male

DRUGS (1)
  1. CYCLOSPORINE. [Suspect]
     Active Substance: CYCLOSPORINE
     Indication: APLASTIC ANAEMIA
     Dosage: 2.5-3 MG/KG, BID
     Route: 065

REACTIONS (2)
  - Granulocytopenia [Unknown]
  - Drug ineffective for unapproved indication [Unknown]
